FAERS Safety Report 6839423-X (Version None)
Quarter: 2010Q3

REPORT INFORMATION
  Report Type: 
  Country: None (occurrence: None)
  Receive Date: 20100714
  Receipt Date: 20100705
  Transmission Date: 20110219
  Serious: Yes (Other)
  Sender: FDA-Public Use
  Company Number: FR-ASTRAZENECA-2010SE31265

PATIENT
  Age: 15344 Day
  Sex: Male

DRUGS (4)
  1. CRESTOR [Suspect]
     Route: 048
     Dates: start: 20071001, end: 20100226
  2. ZYPREXA [Concomitant]
     Dates: end: 20100312
  3. DEPAMIDE [Concomitant]
     Dates: end: 20100312
  4. IXEL [Concomitant]
     Dates: end: 20100312

REACTIONS (1)
  - SKIN EXFOLIATION [None]
